FAERS Safety Report 4784269-X (Version None)
Quarter: 2005Q3

REPORT INFORMATION
  Report Type: 
  Country: None (occurrence: None)
  Receive Date: 20050927
  Receipt Date: 20050912
  Transmission Date: 20060218
  Serious: Yes (Other)
  Sender: FDA-Public Use
  Company Number: US-2005-017779

PATIENT
  Age: 42 Year
  Sex: Female
  Weight: 99.3 kg

DRUGS (5)
  1. MIRENA [Suspect]
     Indication: MENORRHAGIA
     Dosage: 20 UG/DAY, CONT, INTRA-UTERNIE
     Route: 015
     Dates: start: 20041207
  2. ALDOMET [Concomitant]
  3. BENICAR [Concomitant]
  4. FERROUS SULPHATE (FERROUS SULFATE) [Concomitant]
  5. COREG [Concomitant]

REACTIONS (13)
  - ABDOMINAL PAIN LOWER [None]
  - CYSTITIS [None]
  - DRUG EXPOSURE DURING PREGNANCY [None]
  - HEADACHE [None]
  - INTRA-UTERINE CONTRACEPTIVE DEVICE EXPELLED [None]
  - OLIGOHYDRAMNIOS [None]
  - PELVIC INFLAMMATORY DISEASE [None]
  - PELVIC PAIN [None]
  - PREGNANCY WITH ADVANCED MATERNAL AGE [None]
  - PREGNANCY WITH CONTRACEPTIVE DEVICE [None]
  - SENSATION OF HEAVINESS [None]
  - URGE INCONTINENCE [None]
  - UTERINE LEIOMYOMA [None]
